FAERS Safety Report 18027284 (Version 1)
Quarter: 2020Q3

REPORT INFORMATION
  Report Type: Spontaneous
  Country: US (occurrence: US)
  Receive Date: 20200715
  Receipt Date: 20200715
  Transmission Date: 20201103
  Serious: Yes (Other)
  Sender: FDA-Public Use
  Company Number: US-GLAXOSMITHKLINE-US2019AMR240505

PATIENT
  Sex: Female

DRUGS (2)
  1. ZEJULA [Suspect]
     Active Substance: NIRAPARIB
     Indication: OVARIAN CANCER
     Dosage: UNK , QD
     Route: 048
     Dates: start: 20180201
  2. ZEJULA [Suspect]
     Active Substance: NIRAPARIB
     Dosage: UNK , QD
     Route: 048
     Dates: start: 20180201

REACTIONS (8)
  - Insomnia [Unknown]
  - Carbohydrate antigen 125 increased [Unknown]
  - Ovarian cancer recurrent [Unknown]
  - Gastrointestinal disorder [Unknown]
  - Intestinal obstruction [Unknown]
  - Drug ineffective [Unknown]
  - Fatigue [Unknown]
  - Hernia [Unknown]
